FAERS Safety Report 8891337 (Version 1)
Quarter: 2012Q4

REPORT INFORMATION
  Report Type: Spontaneous
  Country: US (occurrence: None)
  Receive Date: 20121105
  Receipt Date: 20121105
  Transmission Date: 20130627
  Serious: Yes (Other)
  Sender: FDA-Public Use
  Company Number: None

PATIENT
  Age: 62 Year
  Sex: Female
  Weight: 45.81 kg

DRUGS (4)
  1. CLINDAMYCIN [Suspect]
     Indication: CLOSTRIDIUM DIFFICILE INFECTION
     Dosage: 300 MG, 1 by mouth 3x day
     Route: 048
     Dates: start: 20120703, end: 20120713
  2. FLAGYL [Concomitant]
  3. VANCOMYCIN [Concomitant]
  4. PROBIOTIC [Concomitant]

REACTIONS (1)
  - Clostridium difficile infection [None]
